FAERS Safety Report 22268141 (Version 1)
Quarter: 2023Q2

REPORT INFORMATION
  Report Type: Spontaneous
  Country: US (occurrence: None)
  Receive Date: 20230427
  Receipt Date: 20230427
  Transmission Date: 20230721
  Serious: Yes (Hospitalization)
  Sender: FDA-Public Use
  Company Number: None

PATIENT
  Sex: Female

DRUGS (3)
  1. NUCALA [Suspect]
     Active Substance: MEPOLIZUMAB
     Indication: Asthma
     Dosage: 100 MG/ML SUBCUTANEOUS?? INJECT 100MG UNDER THE SKIN (SUBCUTANEOUS INJECTION) EVERY 4 WEEKS TO UPPER
     Route: 058
     Dates: start: 20221203
  2. CUVITRU [Concomitant]
     Active Substance: HUMAN IMMUNOGLOBULIN G
  3. EPINEPHRINE [Concomitant]
     Active Substance: EPINEPHRINE

REACTIONS (4)
  - Asthma [None]
  - Quality of life decreased [None]
  - Fatigue [None]
  - Arthralgia [None]
